FAERS Safety Report 6256146-9 (Version None)
Quarter: 2009Q3

REPORT INFORMATION
  Report Type: 
  Country: None (occurrence: None)
  Receive Date: 20090706
  Receipt Date: 20090624
  Transmission Date: 20100115
  Serious: Yes (Other)
  Sender: FDA-Public Use
  Company Number: PHHY2009BR25770

PATIENT
  Sex: Female

DRUGS (1)
  1. RITALIN LA [Suspect]
     Route: 048

REACTIONS (2)
  - DECREASED APPETITE [None]
  - WEIGHT DECREASED [None]
